FAERS Safety Report 6832761-6 (Version None)
Quarter: 2010Q3

REPORT INFORMATION
  Report Type: 
  Country: None (occurrence: None)
  Receive Date: 20100712
  Receipt Date: 20070319
  Transmission Date: 20110219
  Serious: No
  Sender: FDA-Public Use
  Company Number: US-PFIZER INC-2007024297

PATIENT
  Sex: Female
  Weight: 65.32 kg

DRUGS (8)
  1. CHANTIX [Suspect]
     Indication: SMOKING CESSATION THERAPY
     Dates: start: 20070315
  2. OTHER HYPNOTICS AND SEDATIVES [Suspect]
     Indication: INITIAL INSOMNIA
     Dates: start: 20070316
  3. ENALAPRIL MALEATE [Concomitant]
  4. HYDROCHLOROTHIAZIDE [Concomitant]
  5. AMBIEN [Concomitant]
     Indication: INITIAL INSOMNIA
  6. IBANDRONATE SODIUM [Concomitant]
     Indication: OSTEOPOROSIS
  7. LOVASTATIN [Concomitant]
  8. ACETYLSALICYLIC ACID [Concomitant]

REACTIONS (3)
  - DYSPHAGIA [None]
  - NAUSEA [None]
  - VOMITING [None]
